FAERS Safety Report 7339331-4 (Version None)
Quarter: 2011Q1

REPORT INFORMATION
  Report Type: 
  Country: None (occurrence: None)
  Receive Date: 20110308
  Receipt Date: 20110302
  Transmission Date: 20110831
  Serious: Yes (Death, Other)
  Sender: FDA-Public Use
  Company Number: US-PFIZER INC-2011020961

PATIENT
  Sex: Female

DRUGS (4)
  1. TYGACIL [Suspect]
     Dosage: 50 MG, 1X/DAY
     Route: 042
     Dates: start: 20101221, end: 20101227
  2. CIPROFLOXACIN [Concomitant]
     Dosage: UNK
  3. TYGACIL [Suspect]
     Indication: OSTEOMYELITIS
     Dosage: 100 MG, SINGLE
     Route: 042
     Dates: start: 20101220, end: 20101220
  4. VANCOMYCIN [Concomitant]
     Dosage: UNK

REACTIONS (4)
  - SHOCK [None]
  - PANCREATITIS [None]
  - BLOOD AMYLASE ABNORMAL [None]
  - LIPASE ABNORMAL [None]
